FAERS Safety Report 7324465-0 (Version None)
Quarter: 2011Q1

REPORT INFORMATION
  Report Type: 
  Country: None (occurrence: None)
  Receive Date: 20110218
  Receipt Date: 20110210
  Transmission Date: 20110831
  Serious: Yes (Hospitalization, Disabling, Other)
  Sender: FDA-Public Use
  Company Number: 2010SP028233

PATIENT
  Age: 45 Year
  Sex: Female
  Weight: 57.6068 kg

DRUGS (8)
  1. PRENATAL VITAMINS [Concomitant]
  2. CYMBALTA [Suspect]
     Indication: MAJOR DEPRESSION
     Dosage: 60 MG;BID;PO ; 50 MG;QD;PO
     Route: 048
     Dates: start: 20080701
  3. CYMBALTA [Suspect]
     Indication: ANXIETY
     Dosage: 60 MG;BID;PO ; 50 MG;QD;PO
     Route: 048
     Dates: start: 20080701
  4. ALLEGRA [Concomitant]
  5. RHINOCORT [Concomitant]
  6. NUVARING [Suspect]
     Indication: GASTRIC BYPASS
     Dosage: VAG
     Route: 067
     Dates: start: 20061201, end: 20080503
  7. NUVARING [Suspect]
     Indication: ANAEMIA
     Dosage: VAG
     Route: 067
     Dates: start: 20061201, end: 20080503
  8. NORVASC [Suspect]
     Indication: HYPERTENSION
     Dosage: 10 MG;QD;PO
     Route: 048
     Dates: start: 20080511, end: 20080901

REACTIONS (30)
  - DIARRHOEA [None]
  - PRESYNCOPE [None]
  - COGNITIVE DISORDER [None]
  - VISUAL IMPAIRMENT [None]
  - MAJOR DEPRESSION [None]
  - GASTROOESOPHAGEAL REFLUX DISEASE [None]
  - DEPRESSION [None]
  - METRORRHAGIA [None]
  - VOMITING [None]
  - HEADACHE [None]
  - HAEMORRHAGE INTRACRANIAL [None]
  - HYPERTENSION [None]
  - PRURITUS [None]
  - SLEEP APNOEA SYNDROME [None]
  - CEREBROVASCULAR ACCIDENT [None]
  - ANXIETY [None]
  - HYPERHIDROSIS [None]
  - HEMIANOPIA [None]
  - VITAMIN B12 DEFICIENCY [None]
  - HAIR GROWTH ABNORMAL [None]
  - DYSKINESIA [None]
  - NAUSEA [None]
  - SUBARACHNOID HAEMORRHAGE [None]
  - ATTENTION DEFICIT/HYPERACTIVITY DISORDER [None]
  - ANEURYSM [None]
  - CEREBRAL HAEMORRHAGE [None]
  - HAEMATOMA [None]
  - HYPERGLYCAEMIA [None]
  - IRRITABILITY [None]
  - ALOPECIA [None]
